FAERS Safety Report 17992098 (Version 2)
Quarter: 2020Q3

REPORT INFORMATION
  Report Type: Report from Study
  Country: BR (occurrence: BR)
  Receive Date: 20200707
  Receipt Date: 20200730
  Transmission Date: 20201103
  Serious: Yes (Other)
  Sender: FDA-Public Use
  Company Number: NVSC2020BR189752

PATIENT
  Age: 65 Year
  Sex: Male

DRUGS (1)
  1. DIOVAN [Suspect]
     Active Substance: VALSARTAN
     Indication: BLOOD PRESSURE MEASUREMENT
     Dosage: 1 DF, BID
     Route: 065
     Dates: start: 20101005

REACTIONS (9)
  - Obesity [Recovered/Resolved]
  - Diabetes mellitus [Unknown]
  - Hypertension [Recovered/Resolved]
  - General physical health deterioration [Unknown]
  - Drug ineffective [Recovered/Resolved]
  - Glucose tolerance impaired [Unknown]
  - Blood pressure abnormal [Recovered/Resolved]
  - Weight decreased [Unknown]
  - Hypertension [Unknown]

NARRATIVE: CASE EVENT DATE: 202006
